FAERS Safety Report 8129722-6 (Version None)
Quarter: 2012Q1

REPORT INFORMATION
  Report Type: 
  Country: None (occurrence: None)
  Receive Date: 20120103
  Receipt Date: 20110824
  Transmission Date: 20120608
  Serious: No
  Sender: FDA-Public Use
  Company Number: AE-2011-001116

PATIENT
  Age: 45 Year
  Sex: Female

DRUGS (5)
  1. INCIVEK [Suspect]
     Dosage: 2250 MG (750 MG, 3 IN 1 D), ORAL
     Route: 048
     Dates: start: 20110823
  2. RIBAVIRIN (RIBAVIRIN) 08/23/2011 - ONGOING [Concomitant]
  3. PROZAC [Concomitant]
  4. PEGASYS (PEGINTERFERON ALFA-2A) 08/23/2011 - ONGOING [Concomitant]
  5. MULTI-VITAMINS [Concomitant]

REACTIONS (3)
  - HEADACHE [None]
  - PYREXIA [None]
  - NAUSEA [None]
